FAERS Safety Report 6028338-5 (Version None)
Quarter: 2009Q1

REPORT INFORMATION
  Report Type: 
  Country: None (occurrence: None)
  Receive Date: 20090106
  Receipt Date: 20081226
  Transmission Date: 20090719
  Serious: Yes (Other)
  Sender: FDA-Public Use
  Company Number: BR-ROCHE-605281

PATIENT
  Sex: Female
  Weight: 57 kg

DRUGS (5)
  1. CLONAZEPAM [Suspect]
     Dosage: INDICATION: EPILEPSY
     Route: 048
  2. CLONAZEPAM [Suspect]
     Dosage: INDICATION : DEPRESSION AND UNSPECIFIED CRISIS, STRENGTH: 2 MG, FORM: TABLET
     Route: 048
     Dates: start: 19920101
  3. ABLOK PLUS [Concomitant]
     Indication: CARDIAC DISORDER
     Route: 048
     Dates: start: 19960101
  4. TOFRANIL [Concomitant]
     Indication: PANIC DISORDER
     Route: 048
     Dates: start: 19960101
  5. LEXOTAN [Concomitant]
     Dosage: STOP DATE: 1998 OR 1999
     Route: 048
     Dates: start: 19960101, end: 19980101

REACTIONS (8)
  - DIZZINESS [None]
  - FALL [None]
  - INSOMNIA [None]
  - NERVOUSNESS [None]
  - PANIC ATTACK [None]
  - POSTPARTUM DEPRESSION [None]
  - TREMOR [None]
  - VAGINAL HAEMORRHAGE [None]
